FAERS Safety Report 5971821-9 (Version None)
Quarter: 2008Q4

REPORT INFORMATION
  Report Type: 
  Country: None (occurrence: None)
  Receive Date: 20081121
  Receipt Date: 20081106
  Transmission Date: 20090506
  Serious: Yes (Death, Life-Threatening, Hospitalization)
  Sender: FDA-Public Use
  Company Number: DSA_32705_2008

PATIENT
  Sex: Female

DRUGS (8)
  1. XENAZINE [Suspect]
     Indication: HUNTINGTON'S CHOREA
     Dosage: (12.5 MG BID)
     Dates: start: 20080928, end: 20080929
  2. KARDEGIC /00002703/ [Concomitant]
  3. MOVICOL /01749801/ [Concomitant]
  4. SECTRAL [Concomitant]
  5. EFFEXOR /01233802/ [Concomitant]
  6. SERESTA [Concomitant]
  7. THERALENE [Concomitant]
  8. HALDOL SOLUTAB [Concomitant]

REACTIONS (7)
  - CONDITION AGGRAVATED [None]
  - HUNTINGTON'S CHOREA [None]
  - HYPERTHERMIA [None]
  - NUTRITIONAL CONDITION ABNORMAL [None]
  - PALLOR [None]
  - SOMNOLENCE [None]
  - TREMOR [None]
